FAERS Safety Report 5603405-6 (Version None)
Quarter: 2008Q1

REPORT INFORMATION
  Report Type: 
  Country: None (occurrence: None)
  Receive Date: 20080122
  Receipt Date: 20080118
  Transmission Date: 20080703
  Serious: Yes (Hospitalization)
  Sender: FDA-Public Use
  Company Number: LTI2008A00013

PATIENT
  Age: 79 Year
  Sex: Male

DRUGS (12)
  1. OGAST 15 MG (LANSOPRAZOLE) (CAPSULES) [Suspect]
     Dosage: 15 MG (15 MG, 1 -  2) 10 MG (10 MG, 1 -  ORAL
     Route: 048
     Dates: start: 20071119, end: 20071125
  2. SEROPLEX (ESCITALOPRAM) (TABLETS) [Suspect]
     Indication: DEPRESSION
     Dosage: ORAL 10 MG (10 MG, 1 IN 1 D); 20 MG (10 MG, 2 IN 1 D)
     Route: 048
     Dates: start: 20071027, end: 20071125
  3. SEROPLEX (ESCITALOPRAM) (TABLETS) [Suspect]
     Indication: DEPRESSION
     Dosage: ORAL 10 MG (10 MG, 1 IN 1 D); 20 MG (10 MG, 2 IN 1 D)
     Route: 048
     Dates: start: 20070831, end: 20071125
  4. NISIS (VALSARTAN) [Concomitant]
  5. SPECIAFOLDINE (FOLIC ACID) [Concomitant]
  6. MODOPAR (MADOPAR) [Concomitant]
  7. OXAZEPAM [Concomitant]
  8. HYDROSOL (HYDROSOL POLYVITAMINE) [Concomitant]
  9. GAVISCON [Concomitant]
  10. FORLAX (MACROGOL) [Concomitant]
  11. ANAFRANIL [Concomitant]
  12. DIOVAN HCT [Concomitant]

REACTIONS (5)
  - COMA [None]
  - EPILEPSY [None]
  - LOSS OF CONSCIOUSNESS [None]
  - MALAISE [None]
  - STATUS EPILEPTICUS [None]
